FAERS Safety Report 10640241 (Version 1)
Quarter: 2014Q4

REPORT INFORMATION
  Report Type: Spontaneous
  Country: US (occurrence: None)
  Receive Date: 20141205
  Receipt Date: 20141205
  Transmission Date: 20150529
  Serious: No
  Sender: FDA-Public Use
  Company Number: None

PATIENT

DRUGS (2)
  1. LOSARTAN [Suspect]
     Active Substance: LOSARTAN
     Route: 048
  2. LOSARTAN [Suspect]
     Active Substance: LOSARTAN
     Route: 048

REACTIONS (1)
  - Drug dispensed to wrong patient [None]
